FAERS Safety Report 5216300-1 (Version None)
Quarter: 2007Q1

REPORT INFORMATION
  Report Type: 
  Country: None (occurrence: None)
  Receive Date: 20070118
  Receipt Date: 20070105
  Transmission Date: 20070707
  Serious: Yes (Death, Other)
  Sender: FDA-Public Use
  Company Number: 07-000030

PATIENT
  Age: 77 Year
  Sex: Female

DRUGS (9)
  1. PHENAZOPYRIDINE HCL TAB [Suspect]
     Indication: BLADDER DISCOMFORT
     Dosage: 500 MG, QID
     Dates: start: 19670101, end: 19670101
  2. PHENAZOPYRIDINE HCL TAB [Suspect]
     Indication: CYSTOCELE
     Dosage: 500 MG, QID
     Dates: start: 19670101, end: 19670101
  3. PHENAZOPYRIDINE HCL TAB [Suspect]
     Indication: DYSURIA
     Dosage: 500 MG, QID
     Dates: start: 19670101, end: 19670101
  4. MORPHINE [Concomitant]
  5. ATROPINE [Concomitant]
  6. ETHACRYNIC ACID (ETACRYNIC ACID) [Concomitant]
  7. DIGITALIS (DIGITALIS PURPUREA) [Concomitant]
  8. OXYGEN (OXYGEN) [Concomitant]
  9. DIPHENOXYLATE HYDROCHLORIDE (DIPHENOXYLATE HYDROCHLORIDE) [Concomitant]

REACTIONS (14)
  - ABDOMINAL PAIN [None]
  - ACCIDENTAL OVERDOSE [None]
  - DIARRHOEA [None]
  - DIVERTICULUM INTESTINAL [None]
  - GASTRITIS EROSIVE [None]
  - HYPONATRAEMIA [None]
  - JAUNDICE [None]
  - MYOCARDIAL INFARCTION [None]
  - NEPHROSCLEROSIS [None]
  - OLIGURIA [None]
  - PULMONARY EMBOLISM [None]
  - RENAL FAILURE ACUTE [None]
  - SKIN DISCOLOURATION [None]
  - SUDDEN DEATH [None]
